FAERS Safety Report 8088034-X (Version None)
Quarter: 2012Q1

REPORT INFORMATION
  Report Type: 
  Country: None (occurrence: None)
  Receive Date: 20120128
  Receipt Date: 20110527
  Transmission Date: 20120608
  Serious: Yes (Other)
  Sender: FDA-Public Use
  Company Number: US-ABBOTT-11P-163-0728945-00

PATIENT
  Sex: Female
  Weight: 65.83 kg

DRUGS (17)
  1. TYLENOL W/ CODEINE NO. 3 [Concomitant]
     Indication: PAIN
     Dosage: 1 PILL TOTAL
     Route: 048
     Dates: start: 20100206, end: 20100206
  2. HUMIRA [Suspect]
     Dates: start: 20090824, end: 20090915
  3. HUMIRA [Suspect]
     Dates: start: 20100218, end: 20100420
  4. FLUIDS NOS [Concomitant]
     Indication: DEHYDRATION
     Dosage: SHOT
     Route: 042
     Dates: start: 20100206, end: 20100206
  5. PEPCID COMPLETE [Concomitant]
     Indication: DYSPEPSIA
     Dosage: 1 PILL
     Route: 048
     Dates: start: 20100201, end: 20100420
  6. HUMIRA [Suspect]
     Dosage: 80 MG LOADING DOSE
     Dates: start: 20090810, end: 20090810
  7. ACETAMINOPHEN [Concomitant]
     Route: 048
     Dates: start: 20091118, end: 20100420
  8. ACETAMINOPHEN [Concomitant]
     Indication: MIGRAINE
     Dosage: 4.5 TOTAL
     Route: 048
     Dates: start: 20090902, end: 20091117
  9. AMBIEN [Concomitant]
     Indication: INSOMNIA
     Route: 048
     Dates: start: 20100222, end: 20100301
  10. FLU [Concomitant]
     Dosage: VACCINATION
     Route: 042
     Dates: start: 20100104, end: 20100104
  11. TERBUTALINE [Concomitant]
     Dosage: SHOT
     Dates: start: 20100227, end: 20100227
  12. VITAMIN B6 [Concomitant]
     Indication: NAUSEA
     Route: 048
     Dates: start: 20090902, end: 20090925
  13. FLU [Concomitant]
     Indication: INFLUENZA IMMUNISATION
     Dosage: VACCINATION
     Dates: start: 20090930, end: 20090930
  14. TERBUTALINE [Concomitant]
     Indication: UTERINE CONTRACTIONS DURING PREGNANCY
     Dosage: SHOT
     Dates: start: 20100206, end: 20100206
  15. HUMIRA [Suspect]
     Indication: CROHN'S DISEASE
     Dosage: 160 MG LOADING DOSE
     Dates: start: 20090727, end: 20090727
  16. ENTOCORT EC [Concomitant]
     Indication: CROHN'S DISEASE
     Route: 048
     Dates: start: 20090703, end: 20090727
  17. ACETAMINOPHEN [Concomitant]
     Indication: HEADACHE
     Route: 048
     Dates: start: 20090901, end: 20090901

REACTIONS (9)
  - INSOMNIA [None]
  - STAPHYLOCOCCAL INFECTION [None]
  - DEHYDRATION [None]
  - NAUSEA [None]
  - MIGRAINE [None]
  - HEADACHE [None]
  - PAIN [None]
  - SINUSITIS [None]
  - DYSPEPSIA [None]
